FAERS Safety Report 6985636-6 (Version None)
Quarter: 2010Q3

REPORT INFORMATION
  Report Type: 
  Country: None (occurrence: None)
  Receive Date: 20100915
  Receipt Date: 20100907
  Transmission Date: 20110219
  Serious: Yes (Death)
  Sender: FDA-Public Use
  Company Number: GXKR2010US10168

PATIENT
  Age: 41 Year
  Sex: Male

DRUGS (18)
  1. GANCICLOVIR (NGX) [Suspect]
     Indication: PROPHYLAXIS
     Dosage: 6 MG/KG/DAY, MONDAY-FRIDAY
     Route: 042
  2. GANCICLOVIR (NGX) [Suspect]
     Indication: CYTOMEGALOVIRUS VIRAEMIA
     Dosage: 5 MG/KG, Q12H
     Route: 042
  3. PREDNISONE (NGX) [Suspect]
     Indication: GRAFT VERSUS HOST DISEASE
     Dosage: 40 MG/DAY
     Route: 065
  4. PREDNISONE (NGX) [Suspect]
     Dosage: 3 MG/DAY
     Route: 065
  5. MYCOPHENOLATE MOFETIL [Suspect]
     Indication: PROPHYLAXIS AGAINST GRAFT VERSUS HOST DISEASE
     Route: 065
  6. CYCLOSPORINE [Suspect]
     Indication: PROPHYLAXIS AGAINST GRAFT VERSUS HOST DISEASE
     Route: 065
  7. VALGANCICLOVIR HCL [Suspect]
     Indication: CYTOMEGALOVIRUS VIRAEMIA
     Dosage: 900 MG, Q12H
     Route: 048
  8. CIDOFOVIR [Suspect]
     Indication: ENCEPHALITIS
     Dosage: 5 MG/KG, QW
     Route: 042
  9. FOSCARNET [Suspect]
     Indication: CYTOMEGALOVIRUS VIRAEMIA
     Dosage: 90 MG/KG, Q12H
     Route: 042
  10. FOSCARNET [Suspect]
     Indication: ENCEPHALITIS CYTOMEGALOVIRUS
     Dosage: 60 MG/KG, Q12H
     Route: 042
  11. FOSCARNET [Suspect]
     Dosage: 60 MG/KG, QD
     Route: 042
  12. FOSCARNET [Suspect]
     Dosage: 60 MG/KG, Q12H
     Route: 042
  13. ANTI-THYMOCYTE GLOBULIN NOS [Suspect]
     Indication: BONE MARROW CONDITIONING REGIMEN
     Dosage: 3 MG IN TOTAL , OVER DAY 3, 2, 1 BEFORE TRANSPLANTATION
     Route: 065
  14. IMMU-G [Suspect]
     Indication: PROPHYLAXIS
     Dosage: 500 MG/KG WEEKLY
     Route: 042
  15. IMMU-G [Suspect]
     Dosage: 500 MG/KG, Q48H
     Route: 042
  16. FLUDARABINE [Concomitant]
  17. CYCLOPHOSPHAMIDE [Concomitant]
  18. IRRADIATION [Concomitant]
     Indication: PROPHYLAXIS

REACTIONS (6)
  - CYTOMEGALOVIRUS VIRAEMIA [None]
  - DISORIENTATION [None]
  - DRUG RESISTANCE [None]
  - ENCEPHALITIS CYTOMEGALOVIRUS [None]
  - MEMORY IMPAIRMENT [None]
  - RENAL FAILURE [None]
